FAERS Safety Report 4413664-3 (Version None)
Quarter: 2004Q2

REPORT INFORMATION
  Report Type: 
  Country: None (occurrence: None)
  Receive Date: 20040630
  Receipt Date: 20040524
  Transmission Date: 20050107
  Serious: No
  Sender: FDA-Public Use
  Company Number: 04P-163-0261833-00

PATIENT
  Age: 82 Year
  Sex: Female
  Weight: 82.5547 kg

DRUGS (9)
  1. HUMIRA [Suspect]
     Indication: RHEUMATOID ARTHRITIS
     Dosage: 40 MG, 1 IN 2 WK, SUBCUTANEOUS
     Route: 058
     Dates: start: 20040201
  2. ALENDRONATE SODIUM [Concomitant]
  3. ARTHROTEC [Concomitant]
  4. LEVATHROX [Concomitant]
  5. CALCIUM CITRATE [Concomitant]
  6. ASPIRIN [Concomitant]
  7. TELMISARTAN [Concomitant]
  8. CENTRUM [Concomitant]
  9. METHOTREXATE [Concomitant]

REACTIONS (1)
  - INJECTION SITE BURNING [None]
